FAERS Safety Report 6083356-6 (Version None)
Quarter: 2009Q1

REPORT INFORMATION
  Report Type: 
  Country: None (occurrence: None)
  Receive Date: 20090213
  Receipt Date: 20090213
  Transmission Date: 20090719
  Serious: Yes (Life-Threatening, Other)
  Sender: FDA-Public Use
  Company Number: None

PATIENT
  Sex: Female
  Weight: 108.8633 kg

DRUGS (2)
  1. AZITHROMYCIN [Suspect]
     Indication: BRONCHITIS
     Dosage: 2 TABS 1ST DAY, THEN 1 G DAY X 5 DAY TOTAL PO
     Route: 048
     Dates: start: 20081206, end: 20081206
  2. AZITHROMYCIN [Suspect]
     Indication: SINUSITIS
     Dosage: 2 TABS 1ST DAY, THEN 1 G DAY X 5 DAY TOTAL PO
     Route: 048
     Dates: start: 20081206, end: 20081206

REACTIONS (1)
  - ANAPHYLACTIC REACTION [None]
